FAERS Safety Report 8173207-8 (Version None)
Quarter: 2012Q1

REPORT INFORMATION
  Report Type: 
  Country: None (occurrence: None)
  Receive Date: 20120229
  Receipt Date: 20110822
  Transmission Date: 20120608
  Serious: No
  Sender: FDA-Public Use
  Company Number: US-GLAXOSMITHKLINE-A0942750A

PATIENT
  Sex: Female

DRUGS (3)
  1. IMITREX [Suspect]
     Dosage: 6MG SINGLE DOSE
     Route: 030
     Dates: start: 20110815, end: 20110815
  2. IMITREX [Suspect]
     Indication: MIGRAINE
     Route: 065
     Dates: start: 20110821, end: 20110821
  3. IMITREX [Suspect]
     Route: 030
     Dates: start: 20110814, end: 20110814

REACTIONS (2)
  - MATERNAL EXPOSURE DURING PREGNANCY [None]
  - MIGRAINE [None]
